FAERS Safety Report 7095516-6 (Version None)
Quarter: 2010Q4

REPORT INFORMATION
  Report Type: 
  Country: None (occurrence: None)
  Receive Date: 20101102
  Receipt Date: 20101019
  Transmission Date: 20110411
  Serious: Yes (Hospitalization)
  Sender: FDA-Public Use
  Company Number: 018055

PATIENT
  Sex: Male

DRUGS (6)
  1. CIMZIA [Suspect]
     Indication: RHEUMATOID ARTHRITIS
     Dosage: (200 MG 1X/2 WEEKS SUBCUTANEOUS)
     Route: 058
     Dates: start: 20100128, end: 20100810
  2. REBAMIPIDE [Concomitant]
  3. LOXOPROFEN SODIUM [Concomitant]
  4. ALENDRONATE SODIUM [Concomitant]
  5. PIOGLITAZONE HCL [Concomitant]
  6. AMLODIPINE BESYLATE [Concomitant]

REACTIONS (8)
  - AORTIC ANEURYSM [None]
  - BRONCHOPNEUMONIA [None]
  - CANDIDIASIS [None]
  - MALAISE [None]
  - ORGANISING PNEUMONIA [None]
  - PLEURAL EFFUSION [None]
  - PNEUMONIA [None]
  - PYREXIA [None]
